FAERS Safety Report 12581254 (Version 2)
Quarter: 2016Q3

REPORT INFORMATION
  Report Type: Spontaneous
  Country: FR (occurrence: FR)
  Receive Date: 20160721
  Receipt Date: 20160805
  Transmission Date: 20161109
  Serious: Yes (Life-Threatening, Hospitalization)
  Sender: FDA-Public Use
  Company Number: FR-ASTRAZENECA-2016SE75919

PATIENT
  Age: 33523 Day
  Sex: Male

DRUGS (3)
  1. PREVISCAN [Suspect]
     Active Substance: FLUINDIONE
     Indication: ATRIAL FIBRILLATION
     Route: 048
     Dates: end: 20160702
  2. UROREC [Concomitant]
     Active Substance: SILODOSIN
     Dosage: 8.0MG UNKNOWN
     Dates: start: 201606
  3. CRESTOR [Suspect]
     Active Substance: ROSUVASTATIN CALCIUM
     Indication: DYSLIPIDAEMIA
     Route: 048

REACTIONS (8)
  - Muscle haemorrhage [Recovering/Resolving]
  - Urinary retention [Unknown]
  - Haemorrhagic anaemia [Recovering/Resolving]
  - Arthralgia [Unknown]
  - Fall [Unknown]
  - Confusional state [Unknown]
  - International normalised ratio increased [Unknown]
  - Asthenia [Unknown]

NARRATIVE: CASE EVENT DATE: 20160702
